FAERS Safety Report 18944775 (Version 1)
Quarter: 2021Q1

REPORT INFORMATION
  Report Type: Spontaneous
  Country: IT (occurrence: IT)
  Receive Date: 20210226
  Receipt Date: 20210226
  Transmission Date: 20210420
  Serious: Yes (Hospitalization)
  Sender: FDA-Public Use
  Company Number: NVSC2021IT037718

PATIENT
  Age: 9 Year
  Sex: Female
  Weight: 24 kg

DRUGS (2)
  1. EXJADE [Suspect]
     Active Substance: DEFERASIROX
     Indication: CHELATION THERAPY
     Dosage: 540 MG, QD
     Route: 048
     Dates: start: 20181001, end: 20210203
  2. LOSARTAN. [Concomitant]
     Active Substance: LOSARTAN
     Indication: AORTIC DILATATION
     Dosage: UNK
     Route: 065

REACTIONS (4)
  - Fanconi syndrome acquired [Recovering/Resolving]
  - Decreased appetite [Recovering/Resolving]
  - Vomiting [Recovering/Resolving]
  - Headache [Recovering/Resolving]

NARRATIVE: CASE EVENT DATE: 20210203
